FAERS Safety Report 4592705-7 (Version None)
Quarter: 2005Q1

REPORT INFORMATION
  Report Type: 
  Country: None (occurrence: None)
  Receive Date: 20050222
  Receipt Date: 20050208
  Transmission Date: 20050727
  Serious: Yes (Hospitalization, Other)
  Sender: FDA-Public Use
  Company Number: 2005027604

PATIENT
  Age: 78 Year
  Sex: Female

DRUGS (9)
  1. CELEBREX [Suspect]
     Indication: ARTHRITIS
     Dosage: 200 MG (200 MG, 1 IN 1 D), ORAL
     Route: 048
     Dates: start: 20041101, end: 20050103
  2. CLOPIDOGREL BISULFATE [Concomitant]
  3. SALBUTAMOL                   (SALBUTAMOL) [Concomitant]
  4. PANTOPRAZOLE               (PANTOPRAZOLE) [Concomitant]
  5. QUININE          (QUININE) [Concomitant]
  6. COMBIVENT [Concomitant]
  7. SERETIDE MITE [Concomitant]
  8. BETAHISTINE           (BETAHISTINE) [Concomitant]
  9. ALFACALCIDOL                (ALFACALCIDOL) [Concomitant]

REACTIONS (5)
  - BARRETT'S OESOPHAGUS [None]
  - BLOOD CREATINE INCREASED [None]
  - BLOOD UREA DECREASED [None]
  - HAEMOGLOBIN DECREASED [None]
  - HIATUS HERNIA [None]
